FAERS Safety Report 12574840 (Version 1)
Quarter: 2016Q3

REPORT INFORMATION
  Report Type: Spontaneous
  Country: US (occurrence: US)
  Receive Date: 20160720
  Receipt Date: 20160720
  Transmission Date: 20161109
  Serious: No
  Sender: FDA-Public Use
  Company Number: US-ASTELLAS-2015US029647

PATIENT
  Sex: Female

DRUGS (2)
  1. VESICARE [Suspect]
     Active Substance: SOLIFENACIN SUCCINATE
     Indication: URINARY INCONTINENCE
     Dosage: HALF OF THE TABLET, EVERY OTHER NIGHT
     Route: 065
  2. VESICARE [Suspect]
     Active Substance: SOLIFENACIN SUCCINATE
     Dosage: 1/3 OF THE TABLET, ONCE DAILY
     Route: 065
     Dates: end: 201508

REACTIONS (3)
  - Inappropriate schedule of drug administration [Unknown]
  - Constipation [Unknown]
  - Wrong technique in product usage process [Unknown]
